FAERS Safety Report 12225489 (Version 2)
Quarter: 2016Q2

REPORT INFORMATION
  Report Type: Report from Study
  Country: US (occurrence: US)
  Receive Date: 20160331
  Receipt Date: 20160606
  Transmission Date: 20160815
  Serious: Yes (Hospitalization, Other)
  Sender: FDA-Public Use
  Company Number: US-BAYER-2016-047288

PATIENT
  Age: 40 Year
  Sex: Female
  Weight: 64.4 kg

DRUGS (5)
  1. ADEMPAS [Suspect]
     Active Substance: RIOCIGUAT
     Indication: PULMONARY ARTERIAL HYPERTENSION
     Dosage: 2.5 MG, TID
     Route: 048
  2. ADEMPAS [Suspect]
     Active Substance: RIOCIGUAT
     Indication: PULMONARY ARTERIAL HYPERTENSION
     Dosage: 2.5 MG, TID
     Route: 048
  3. ADEMPAS [Suspect]
     Active Substance: RIOCIGUAT
     Indication: PULMONARY ARTERIAL HYPERTENSION
     Dosage: UNK
     Dates: start: 20160201
  4. VELETRI [Concomitant]
     Active Substance: EPOPROSTENOL
  5. ADEMPAS [Suspect]
     Active Substance: RIOCIGUAT
     Indication: PULMONARY ARTERIAL HYPERTENSION
     Dosage: 2.5 MG, TID
     Route: 048

REACTIONS (9)
  - Weight increased [Unknown]
  - Anaemia [Unknown]
  - Blood count abnormal [Unknown]
  - Renal impairment [Unknown]
  - Dyspnoea [Unknown]
  - Micturition disorder [Unknown]
  - Dyspnoea [None]
  - Palpitations [None]
  - Chest pain [Unknown]

NARRATIVE: CASE EVENT DATE: 20160307
